FAERS Safety Report 5143459-7 (Version None)
Quarter: 2006Q4

REPORT INFORMATION
  Report Type: 
  Country: None (occurrence: None)
  Receive Date: 20061103
  Receipt Date: 20061020
  Transmission Date: 20070319
  Serious: Yes (Other)
  Sender: FDA-Public Use
  Company Number: US-ELI_LILLY_AND_COMPANY-US200610003868

PATIENT
  Age: 95 Year
  Sex: Male

DRUGS (2)
  1. CYMBALTA [Suspect]
  2. ZYVOX [Interacting]

REACTIONS (3)
  - DRUG INTERACTION [None]
  - SEROTONIN SYNDROME [None]
  - TREMOR [None]
